FAERS Safety Report 23449098 (Version 1)
Quarter: 2024Q1

REPORT INFORMATION
  Report Type: Spontaneous
  Country: US (occurrence: US)
  Receive Date: 20240128
  Receipt Date: 20240128
  Transmission Date: 20240409
  Serious: No
  Sender: FDA-Public Use
  Company Number: US-AUROBINDO-AUR-APL-2023-032223

PATIENT
  Age: 55 Year
  Sex: Male
  Weight: 54 kg

DRUGS (2)
  1. LOPERAMIDE [Suspect]
     Active Substance: LOPERAMIDE
     Indication: Diarrhoea
     Dosage: UNK, 3 TIMES A DAY
     Route: 065
  2. LOPERAMIDE [Suspect]
     Active Substance: LOPERAMIDE
     Dosage: UNK
     Route: 048

REACTIONS (4)
  - Malaise [Not Recovered/Not Resolved]
  - Taste disorder [Not Recovered/Not Resolved]
  - Throat irritation [Not Recovered/Not Resolved]
  - Product solubility abnormal [Unknown]
